FAERS Safety Report 8139922-7 (Version None)
Quarter: 2012Q1

REPORT INFORMATION
  Report Type: 
  Country: None (occurrence: None)
  Receive Date: 20120215
  Receipt Date: 20120206
  Transmission Date: 20120608
  Serious: Yes (Other)
  Sender: FDA-Public Use
  Company Number: US-ASTRAZENECA-2011SE71050

PATIENT
  Age: 55 Year
  Sex: Female

DRUGS (6)
  1. NEXIUM [Suspect]
     Route: 048
  2. LISINOPRIL [Suspect]
     Route: 048
  3. ZYRTEC [Concomitant]
  4. CALCIUM [Concomitant]
  5. VITAMIN D [Concomitant]
  6. SYNTHROID [Concomitant]

REACTIONS (5)
  - WRONG DRUG ADMINISTERED [None]
  - ASTHENIA [None]
  - THYROID CANCER [None]
  - NEOPLASM MALIGNANT [None]
  - MALAISE [None]
